FAERS Safety Report 11721071 (Version 1)
Quarter: 2015Q4

REPORT INFORMATION
  Report Type: Spontaneous
  Country: US (occurrence: US)
  Receive Date: 20151110
  Receipt Date: 20151110
  Transmission Date: 20160304
  Serious: No
  Sender: FDA-Public Use
  Company Number: US-SA-2015SA172277

PATIENT
  Sex: Male

DRUGS (4)
  1. PRALUENT [Suspect]
     Active Substance: ALIROCUMAB
     Indication: HYPERLIPIDAEMIA
     Dosage: ROUTE: UNDER THE SKIN
     Dates: start: 20150922
  2. ALIROCUMAB PREFILLED PEN [Concomitant]
     Indication: HYPERLIPIDAEMIA
     Dates: start: 20150922
  3. ALIROCUMAB PREFILLED PEN [Concomitant]
     Indication: MYOCARDIAL INFARCTION
     Dates: start: 20150922
  4. PRALUENT [Suspect]
     Active Substance: ALIROCUMAB
     Indication: MYOCARDIAL INFARCTION
     Dosage: ROUTE: UNDER THE SKIN
     Dates: start: 20150922

REACTIONS (3)
  - Abdominal discomfort [Unknown]
  - Dizziness [Unknown]
  - Nausea [Unknown]
